FAERS Safety Report 13075353 (Version 1)
Quarter: 2016Q4

REPORT INFORMATION
  Report Type: Spontaneous
  Country: US (occurrence: US)
  Receive Date: 20161230
  Receipt Date: 20161230
  Transmission Date: 20170207
  Serious: No
  Sender: FDA-Public Use
  Company Number: US-BAYER-2016-243874

PATIENT
  Age: 17 Year
  Sex: Female

DRUGS (6)
  1. LEVONORGESTREL. [Suspect]
     Active Substance: LEVONORGESTREL
     Indication: CONTRACEPTION
     Dosage: 20 MCG/24HR, CONT
     Route: 015
     Dates: start: 2014
  2. CYCLOSPORINE. [Suspect]
     Active Substance: CYCLOSPORINE
  3. LEVONORGESTREL INTRAUTERINE DEVICE [Suspect]
     Active Substance: LEVONORGESTREL
     Indication: CONTRACEPTION
  4. MEDROXYPROGESTERONE ACETATE. [Concomitant]
     Active Substance: MEDROXYPROGESTERONE ACETATE
  5. SIROLIMUS. [Suspect]
     Active Substance: SIROLIMUS
     Dosage: UNK
  6. MYCOPHENOLATE MOFETIL. [Suspect]
     Active Substance: MYCOPHENOLATE MOFETIL
     Dosage: UNK

REACTIONS (2)
  - Pain [None]
  - Device expulsion [None]
